FAERS Safety Report 8823128 (Version 1)
Quarter: 2012Q4

REPORT INFORMATION
  Report Type: 
  Country: GB (occurrence: GB)
  Receive Date: 20121003
  Receipt Date: 20121003
  Transmission Date: 20130627
  Serious: Yes (Hospitalization)
  Sender: FDA-Public Use
  Company Number: GB-TEVA-361913ISR

PATIENT
  Age: 67 Year
  Sex: Male
  Weight: 86 kg

DRUGS (7)
  1. PREDNISOLONE [Suspect]
     Indication: PRODUCT USED FOR UNKNOWN INDICATION
     Dosage: 10 Milligram Daily;
     Route: 048
     Dates: start: 20120713
  2. SIMVASTATIN [Suspect]
     Indication: PRODUCT USED FOR UNKNOWN INDICATION
     Route: 048
     Dates: start: 2009
  3. DOCETAXEL [Suspect]
     Indication: PRODUCT USED FOR UNKNOWN INDICATION
     Route: 042
     Dates: start: 20120713, end: 20120824
  4. LISINOPRIL [Suspect]
     Indication: PRODUCT USED FOR UNKNOWN INDICATION
     Dosage: 5 Milligram Daily;
     Route: 048
     Dates: start: 2009
  5. MIRTAZAPINE [Suspect]
     Indication: PRODUCT USED FOR UNKNOWN INDICATION
     Dosage: 15 Milligram Daily;
     Route: 048
     Dates: start: 20120611
  6. ZOLADEX [Concomitant]
     Route: 042
     Dates: start: 20120515, end: 20120611
  7. ZOLEDRONIC ACID [Concomitant]
     Route: 048
     Dates: start: 20120713, end: 20120824

REACTIONS (2)
  - Pyrexia [Recovered/Resolved]
  - Chills [Recovered/Resolved]
